FAERS Safety Report 5964879-4 (Version None)
Quarter: 2008Q4

REPORT INFORMATION
  Report Type: 
  Country: None (occurrence: None)
  Receive Date: 20081124
  Receipt Date: 20081124
  Transmission Date: 20090506
  Serious: Yes (Hospitalization)
  Sender: FDA-Public Use
  Company Number: None

PATIENT
  Age: 48 Year
  Sex: Female
  Weight: 68 kg

DRUGS (1)
  1. SCANDONEST 2% [Suspect]
     Indication: DENTAL CLEANING
     Dosage: 1 CARTRIDGE 1 DENTAL
     Dates: start: 20081030, end: 20081030

REACTIONS (6)
  - APHASIA [None]
  - ASTHENIA [None]
  - CONVULSION [None]
  - IMMOBILE [None]
  - PALPITATIONS [None]
  - UNRESPONSIVE TO STIMULI [None]
